FAERS Safety Report 9123450 (Version 2)
Quarter: 2013Q3

REPORT INFORMATION
  Report Type: Spontaneous
  Country: JP (occurrence: JP)
  Receive Date: 20130115
  Receipt Date: 20130916
  Transmission Date: 20140515
  Serious: Yes (Other)
  Sender: FDA-Public Use
  Company Number: JP-SANOFI-AVENTIS-2013SA002131

PATIENT
  Age: 58 Year
  Sex: Male

DRUGS (8)
  1. TAXOTERE [Suspect]
     Indication: PROSTATE CANCER
     Route: 065
     Dates: start: 2006
  2. TAXOTERE [Suspect]
     Indication: METASTASES TO BONE
     Route: 065
     Dates: start: 2006
  3. DECADRON [Concomitant]
     Indication: PROSTATE CANCER
     Dates: start: 2006
  4. DECADRON [Concomitant]
     Indication: METASTASES TO BONE
     Dates: start: 2006
  5. ESTRACYT [Concomitant]
     Indication: PROSTATE CANCER
     Dates: start: 2006
  6. ESTRACYT [Concomitant]
     Indication: METASTASES TO BONE
     Dates: start: 2006
  7. LEUPLIN [Concomitant]
     Indication: PROSTATE CANCER
     Dates: start: 200612
  8. LEUPLIN [Concomitant]
     Indication: METASTASES TO BONE
     Dates: start: 200612

REACTIONS (3)
  - Cystoid macular oedema [Recovered/Resolved]
  - Visual acuity reduced [Recovered/Resolved]
  - Vision blurred [Recovered/Resolved]
